FAERS Safety Report 16094147 (Version 1)
Quarter: 2019Q1

REPORT INFORMATION
  Report Type: Spontaneous
  Country: US (occurrence: US)
  Receive Date: 20190320
  Receipt Date: 20190320
  Transmission Date: 20190418
  Serious: No
  Sender: FDA-Public Use
  Company Number: US-BAYER-2019-051429

PATIENT
  Age: 34 Year
  Sex: Female
  Weight: 55 kg

DRUGS (2)
  1. MIRALAX [Suspect]
     Active Substance: POLYETHYLENE GLYCOL 3350
     Indication: DIARRHOEA
     Dosage: 1 DF, QD
     Route: 048
     Dates: start: 20190309, end: 20190309
  2. MIRALAX [Suspect]
     Active Substance: POLYETHYLENE GLYCOL 3350
     Indication: DIARRHOEA
     Dosage: UNK
     Dates: start: 2018

REACTIONS (7)
  - Gastric disorder [Not Recovered/Not Resolved]
  - Product use in unapproved indication [None]
  - Abdominal discomfort [Not Recovered/Not Resolved]
  - Contraindicated product administered [None]
  - Feeling abnormal [Not Recovered/Not Resolved]
  - Poor quality product administered [None]
  - Product taste abnormal [Unknown]

NARRATIVE: CASE EVENT DATE: 20190309
